FAERS Safety Report 5133172-4 (Version None)
Quarter: 2006Q4

REPORT INFORMATION
  Report Type: 
  Country: None (occurrence: None)
  Receive Date: 20061023
  Receipt Date: 20061013
  Transmission Date: 20070319
  Serious: Yes (Hospitalization)
  Sender: FDA-Public Use
  Company Number: CA-BOEHRINGER INGELHEIM PHARMACEUTICALS, INC.-2006-CN-00560CN

PATIENT
  Sex: Female
  Weight: 200 kg

DRUGS (1)
  1. MICARDIS [Suspect]
     Dates: start: 20060602

REACTIONS (3)
  - ARRHYTHMIA [None]
  - CHEST PAIN [None]
  - HYPOTENSION [None]
